FAERS Safety Report 4431801-1 (Version None)
Quarter: 2004Q3

REPORT INFORMATION
  Report Type: 
  Country: None (occurrence: None)
  Receive Date: 20040819
  Receipt Date: 20040803
  Transmission Date: 20050211
  Serious: Yes (Hospitalization)
  Sender: FDA-Public Use
  Company Number: 104959ISR

PATIENT
  Age: 40 Year
  Sex: Male

DRUGS (4)
  1. CARBOPLATIN [Suspect]
     Dosage: 40 MILLIGRAM; INTRAVENOUS (NOS)
     Route: 042
     Dates: start: 20040628, end: 20040628
  2. FLUOROURACIL [Suspect]
     Dosage: 80 MILLIGRAM, INTRAVENOUS (NOS)
     Route: 042
     Dates: start: 20040628, end: 20040628
  3. ALIZAPRIDE HYDROCHLORIDE [Suspect]
     Dosage: NI; INTRAVENOUS NOS
     Route: 042
     Dates: start: 20040628, end: 20040628
  4. GRANISETRON [Suspect]
     Dosage: NI; INTRAVENOUS NOS
     Route: 042
     Dates: start: 20040628, end: 20040628

REACTIONS (6)
  - DYSPNOEA [None]
  - HYPERHIDROSIS [None]
  - PAIN [None]
  - PARAESTHESIA [None]
  - SYNCOPE [None]
  - VOMITING [None]
